FAERS Safety Report 19719957 (Version 2)
Quarter: 2023Q1

REPORT INFORMATION
  Report Type: Spontaneous
  Country: DE (occurrence: DE)
  Receive Date: 20210819
  Receipt Date: 20230206
  Transmission Date: 20230417
  Serious: Yes (Other)
  Sender: FDA-Public Use
  Company Number: DE-NOVARTISPH-NVSC2021DE186996

PATIENT

DRUGS (1)
  1. TRAMETINIB [Suspect]
     Active Substance: TRAMETINIB
     Indication: Cardiac hypertrophy
     Dosage: 0.04 MG/KG/DAY STARTED AT 4 WEEKS OF AGE
     Route: 065

REACTIONS (5)
  - Cardiac hypertrophy [Unknown]
  - N-terminal prohormone brain natriuretic peptide increased [Unknown]
  - Concomitant disease aggravated [Unknown]
  - Product use in unapproved indication [Unknown]
  - Off label use [Unknown]
